FAERS Safety Report 17190764 (Version 1)
Quarter: 2019Q4

REPORT INFORMATION
  Report Type: Spontaneous
  Country: DE (occurrence: DE)
  Receive Date: 20191223
  Receipt Date: 20191223
  Transmission Date: 20200122
  Serious: Yes (Hospitalization)
  Sender: FDA-Public Use
  Company Number: DE-TEVA-2019-DE-1155101

PATIENT
  Age: 68 Year
  Sex: Female

DRUGS (4)
  1. FAMOTIDIN [Suspect]
     Active Substance: FAMOTIDINE
     Indication: GASTROOESOPHAGEAL REFLUX DISEASE
     Dosage: 40 MILLIGRAM DAILY;
     Route: 048
     Dates: start: 201911
  2. FAMOTIDIN [Suspect]
     Active Substance: FAMOTIDINE
     Indication: DIZZINESS
  3. FAMOTIDIN [Suspect]
     Active Substance: FAMOTIDINE
     Indication: ABDOMINAL PAIN UPPER
     Dosage: 40 MILLIGRAM DAILY; FOR 3 DAYS
     Route: 048
     Dates: start: 201911
  4. FAMOTIDIN [Suspect]
     Active Substance: FAMOTIDINE
     Indication: NAUSEA

REACTIONS (4)
  - Gastrooesophageal reflux disease [Recovered/Resolved]
  - Nausea [Recovered/Resolved]
  - Abdominal pain upper [Recovered/Resolved]
  - Drug ineffective [Recovered/Resolved]

NARRATIVE: CASE EVENT DATE: 201911
